FAERS Safety Report 18158091 (Version 3)
Quarter: 2021Q3

REPORT INFORMATION
  Report Type: Report from Study
  Country: BR (occurrence: BR)
  Receive Date: 20200817
  Receipt Date: 20210906
  Transmission Date: 20211014
  Serious: Yes (Hospitalization, Other)
  Sender: FDA-Public Use
  Company Number: NVSC2020BR225440

PATIENT
  Age: 66 Year
  Sex: Female

DRUGS (2)
  1. ENTRESTO [Suspect]
     Active Substance: SACUBITRIL\VALSARTAN
     Indication: CARDIAC FAILURE
     Dosage: 100 MG, Q12H (49/51 MG) MORE THAN ONE YEAR
     Route: 048
  2. ENTRESTO [Suspect]
     Active Substance: SACUBITRIL\VALSARTAN
     Dosage: 2 DF, Q12H
     Route: 065
     Dates: start: 2019

REACTIONS (7)
  - Memory impairment [Not Recovered/Not Resolved]
  - Unevaluable event [Unknown]
  - Anxiety [Unknown]
  - Illness [Unknown]
  - Myocardial infarction [Unknown]
  - Arrhythmia [Recovered/Resolved with Sequelae]
  - Product dose omission issue [Unknown]

NARRATIVE: CASE EVENT DATE: 2014
